FAERS Safety Report 6859383-5 (Version None)
Quarter: 2010Q3

REPORT INFORMATION
  Report Type: 
  Country: None (occurrence: None)
  Receive Date: 20100719
  Receipt Date: 20080325
  Transmission Date: 20110219
  Serious: No
  Sender: FDA-Public Use
  Company Number: US-PFIZER INC-2008018425

PATIENT
  Sex: Female
  Weight: 65.9 kg

DRUGS (7)
  1. CHANTIX [Suspect]
     Indication: SMOKING CESSATION THERAPY
     Dates: start: 20080214
  2. SEREVENT [Concomitant]
  3. COMBIVENT [Concomitant]
  4. FLOVENT [Concomitant]
  5. NORTRIPTYLINE [Concomitant]
  6. ALL OTHER THERAPEUTIC PRODUCTS [Concomitant]
  7. KLONOPIN [Concomitant]

REACTIONS (5)
  - DEPRESSION [None]
  - EPISTAXIS [None]
  - INCREASED APPETITE [None]
  - SOMNOLENCE [None]
  - VISION BLURRED [None]
